FAERS Safety Report 9030784 (Version 1)
Quarter: 2013Q1

REPORT INFORMATION
  Report Type: Spontaneous
  Country: US (occurrence: US)
  Receive Date: 20130123
  Receipt Date: 20130123
  Transmission Date: 20140127
  Serious: Yes (Other)
  Sender: FDA-Public Use
  Company Number: PHEH2013US001796

PATIENT
  Age: 44 Year
  Sex: Female

DRUGS (1)
  1. GILENYA [Suspect]
     Indication: MULTIPLE SCLEROSIS
     Dosage: 0.5 MG, QD
     Route: 048
     Dates: start: 201106

REACTIONS (4)
  - Suicidal ideation [Recovered/Resolved]
  - Nervous system disorder [Not Recovered/Not Resolved]
  - Dyscalculia [Not Recovered/Not Resolved]
  - Fatigue [Recovered/Resolved]
